FAERS Safety Report 7231906-6 (Version None)
Quarter: 2011Q1

REPORT INFORMATION
  Report Type: 
  Country: None (occurrence: None)
  Receive Date: 20110118
  Receipt Date: 20110111
  Transmission Date: 20110831
  Serious: Yes (Disabling, Other)
  Sender: FDA-Public Use
  Company Number: PHHY2010US53493

PATIENT
  Sex: Female
  Weight: 67.12 kg

DRUGS (18)
  1. MULTI-VITAMINS [Concomitant]
     Route: 048
  2. NEUPOGEN [Concomitant]
     Dosage: 480 MCG/0.8ML
  3. OMEPRAZOLE [Concomitant]
     Dosage: 20 MG, UNK
  4. OXYCONTIN [Concomitant]
     Dosage: 60 MG, UNK
  5. ZOFRAN [Concomitant]
     Dosage: 8 MG, UNK
  6. ZOLOFT [Concomitant]
     Dosage: 100 MG, UNK
  7. NORCO [Concomitant]
     Dosage: 10-325 MG TAB
  8. AMBIEN [Concomitant]
     Dosage: 10 MG, UNK
  9. AUGMENTIN '125' [Concomitant]
     Dosage: 875 MG, UNK
  10. ESTRACE [Concomitant]
     Dosage: 0.01 %, UNK
  11. FISH OIL [Concomitant]
     Dosage: 1000 MG, UNK
  12. VALTREX [Concomitant]
     Dosage: 1 MG, UNK
  13. ZOMETA [Suspect]
     Indication: MULTIPLE MYELOMA
     Dosage: 4 MG, QMO
     Dates: start: 20100510, end: 20100729
  14. LABETALOL [Concomitant]
     Dosage: 100 MG, UNK
  15. VELCADE [Concomitant]
     Dosage: ABOUT 10 CYCLES
     Dates: start: 20091201
  16. COLCHICINE [Concomitant]
     Dosage: 0.6 MG, UNK
  17. REVLIMID [Concomitant]
     Dosage: ABOUT 10 CYCLES
     Dates: start: 20070101
  18. DECADRON [Concomitant]
     Dosage: ABOUT 10 CYCLES
     Dates: start: 20070101

REACTIONS (20)
  - OPEN WOUND [None]
  - KYPHOSCOLIOSIS [None]
  - NAUSEA [None]
  - HYPOAESTHESIA [None]
  - ALANINE AMINOTRANSFERASE INCREASED [None]
  - EXOSTOSIS [None]
  - BLOOD MAGNESIUM INCREASED [None]
  - ORAL DISCOMFORT [None]
  - GINGIVAL PAIN [None]
  - BONE LESION [None]
  - PAIN [None]
  - BLOOD ALKALINE PHOSPHATASE INCREASED [None]
  - WHITE BLOOD CELL COUNT INCREASED [None]
  - BACK PAIN [None]
  - FATIGUE [None]
  - BLOOD PHOSPHORUS INCREASED [None]
  - OSTEONECROSIS OF JAW [None]
  - ASPARTATE AMINOTRANSFERASE INCREASED [None]
  - TONGUE INJURY [None]
  - BONE DISORDER [None]
